FAERS Safety Report 20211241 (Version 1)
Quarter: 2021Q4

REPORT INFORMATION
  Report Type: Spontaneous
  Country: US (occurrence: None)
  Receive Date: 20211220
  Receipt Date: 20211220
  Transmission Date: 20220303
  Serious: No
  Sender: FDA-Public Use
  Company Number: None

PATIENT
  Age: 64 Year
  Sex: Female
  Weight: 56.25 kg

DRUGS (1)
  1. REGEN-COV [Suspect]
     Active Substance: CASIRIVIMAB\IMDEVIMAB
     Indication: COVID-19
     Dosage: OTHER QUANTITY : 4 INJECTION(S);?
     Route: 058
     Dates: start: 20211218, end: 20211218

REACTIONS (5)
  - Nausea [None]
  - Defaecation urgency [None]
  - Respiratory rate increased [None]
  - Paraesthesia [None]
  - Syncope [None]

NARRATIVE: CASE EVENT DATE: 20211219
